FAERS Safety Report 4997782-7 (Version None)
Quarter: 2006Q2

REPORT INFORMATION
  Report Type: 
  Country: None (occurrence: None)
  Receive Date: 20060510
  Receipt Date: 20060330
  Transmission Date: 20061013
  Serious: Yes (Other)
  Sender: FDA-Public Use
  Company Number: GBWYE524931MAR06

PATIENT
  Sex: Male

DRUGS (2)
  1. ENBREL [Suspect]
     Indication: RHEUMATOID ARTHRITIS
     Dosage: UNKNOWN
     Route: 065
     Dates: start: 20040501
  2. UNSPECIFIED MEDICATION [Concomitant]
     Route: 065

REACTIONS (3)
  - APHASIA [None]
  - HERNIA [None]
  - PARTIAL SEIZURES [None]
